FAERS Safety Report 6752470-1 (Version None)
Quarter: 2010Q2

REPORT INFORMATION
  Report Type: 
  Country: None (occurrence: None)
  Receive Date: 20100601
  Receipt Date: 20100601
  Transmission Date: 20101027
  Serious: No
  Sender: FDA-Public Use
  Company Number: None

PATIENT
  Age: 51 Year
  Sex: Female

DRUGS (1)
  1. CYMBALTA [Suspect]
     Indication: DEPRESSION
     Dosage: UNSURE
     Dates: start: 20100425, end: 20100512

REACTIONS (3)
  - CHROMATURIA [None]
  - DYSURIA [None]
  - RENAL FAILURE [None]
